FAERS Safety Report 9157967 (Version 2)
Quarter: 2013Q2

REPORT INFORMATION
  Report Type: Spontaneous
  Country: JP (occurrence: None)
  Receive Date: 20130220
  Receipt Date: 20130524
  Transmission Date: 20140414
  Serious: No
  Sender: FDA-Public Use
  Company Number: TCI2013A00811

PATIENT
  Age: 78 Year
  Sex: Female

DRUGS (11)
  1. NESINA [Suspect]
     Indication: DIABETES MELLITUS
     Route: 048
     Dates: start: 20130924, end: 20130131
  2. OMEPRAL (OMEPRAZOLE) [Concomitant]
  3. AMARYL (GLIMEPIRIDE) [Concomitant]
  4. METGLUCO (METFORMIN HYDROCHLORIDE) [Concomitant]
  5. DIOVAN (VALSARTAN) [Concomitant]
  6. PRAVASTAN (PRAVASTATIN SODIUM) [Concomitant]
  7. SULPIRIDE [Concomitant]
  8. TASMOLIN (BIPERIDEN HYDROCHLORIDE) [Concomitant]
  9. JZOLOFT (SERTRALINE HYDROCLORIDE) [Concomitant]
  10. RHYTHMY (RUKNAZAFONE HYDROCHLORIDE) [Concomitant]
  11. LENDORMINE (BROTIZOLAM) [Concomitant]

REACTIONS (5)
  - Blood alkaline phosphatase increased [None]
  - Liver disorder [None]
  - Alanine aminotransferase increased [None]
  - Aspartate aminotransferase increased [None]
  - Gamma-glutamyltransferase increased [None]
